FAERS Safety Report 9557102 (Version 1)
Quarter: 2013Q3

REPORT INFORMATION
  Report Type: Spontaneous
  Country: US (occurrence: None)
  Receive Date: 20130724
  Receipt Date: 20130724
  Transmission Date: 20140515
  Serious: Yes (Other)
  Sender: FDA-Public Use
  Company Number: PHEH2013US003040

PATIENT
  Age: 54 Year
  Sex: Female

DRUGS (1)
  1. GILENYA [Suspect]
     Indication: MULTIPLE SCLEROSIS
     Route: 048
     Dates: start: 20121120

REACTIONS (7)
  - Tooth abscess [None]
  - Insomnia [None]
  - Multiple sclerosis relapse [None]
  - Influenza [None]
  - Paraesthesia [None]
  - Gait disturbance [None]
  - Pain in extremity [None]
